FAERS Safety Report 10382020 (Version 1)
Quarter: 2014Q1

REPORT INFORMATION
  Report Type: Spontaneous
  Country: US (occurrence: None)
  Receive Date: 20140306
  Receipt Date: 20140306
  Transmission Date: 20141002
  Serious: Yes (Other)
  Sender: FDA-Public Use
  Company Number: 163-21880-13091552

PATIENT
  Age: 78 Year
  Sex: Male

DRUGS (14)
  1. REVLIMID (LENALIDOMIDE) (10 MILLIGRAM, CAPSULES) [Suspect]
     Indication: PLASMA CELL MYELOMA
     Dosage: 10 MG, 25 IN 25 D, PO
     Route: 048
     Dates: start: 20130625, end: 201303
  2. ALLOPURINOL [Concomitant]
  3. ASPIRIN (ACETYLSALICYLIC ACID) [Concomitant]
  4. CALCIUM +D (OS-CAL) [Concomitant]
  5. COREG (CARVEDILOL) [Concomitant]
  6. DEXAMETHASONE [Concomitant]
  7. IRON [Concomitant]
  8. LANTUS (INSULIN GLARGINE) [Concomitant]
  9. LASIX (FUROSEMIDE) [Concomitant]
  10. LOSARTAN [Concomitant]
  11. NOVOLOG (INSULIN ASPART) [Concomitant]
  12. PLAVIX (CLOPIDOGREL SULFATE) [Concomitant]
  13. VESICARE (SOLIFENACIN SUCCINATE) [Concomitant]
  14. VITAMIN D (ERGOCALCIFEROL) [Concomitant]

REACTIONS (1)
  - Laboratory test abnormal [None]
